FAERS Safety Report 5739368-2 (Version None)
Quarter: 2008Q2

REPORT INFORMATION
  Report Type: 
  Country: None (occurrence: None)
  Receive Date: 20080515
  Receipt Date: 20080506
  Transmission Date: 20081010
  Serious: Yes (Death, Hospitalization)
  Sender: FDA-Public Use
  Company Number: HK-PFIZER INC-2007042092

PATIENT
  Sex: Male
  Weight: 68 kg

DRUGS (3)
  1. SU-011,248 [Suspect]
     Indication: GASTRIC CANCER
     Route: 048
     Dates: start: 20070425, end: 20070515
  2. DRUG, UNSPECIFIED [Concomitant]
     Route: 048
     Dates: start: 20070425, end: 20070515
  3. MAXOLON [Concomitant]
     Route: 048
     Dates: start: 20070425, end: 20070515

REACTIONS (2)
  - CARDIAC ARREST [None]
  - VOMITING [None]
